FAERS Safety Report 6201441-2 (Version None)
Quarter: 2009Q2

REPORT INFORMATION
  Report Type: 
  Country: None (occurrence: None)
  Receive Date: 20090526
  Receipt Date: 20090518
  Transmission Date: 20091009
  Serious: Yes (Other)
  Sender: FDA-Public Use
  Company Number: US-ROCHE-630772

PATIENT
  Sex: Female
  Weight: 60.3 kg

DRUGS (2)
  1. CAPECITABINE [Suspect]
     Indication: BREAST CANCER
     Route: 048
     Dates: start: 20081203, end: 20090401
  2. NEXIUM [Concomitant]

REACTIONS (1)
  - BREAST CANCER [None]
